FAERS Safety Report 9672275 (Version 2)
Quarter: 2013Q4

REPORT INFORMATION
  Report Type: Spontaneous
  Country: US (occurrence: US)
  Receive Date: 20131106
  Receipt Date: 20131106
  Transmission Date: 20140711
  Serious: No
  Sender: FDA-Public Use
  Company Number: US-BAXTER-2013BAX041864

PATIENT
  Age: 35 Year
  Sex: Female

DRUGS (4)
  1. DIANEAL LOW CALCIUM [Suspect]
     Indication: RENAL FAILURE CHRONIC
     Route: 033
     Dates: start: 201309
  2. DIANEAL LOW CALCIUM [Suspect]
     Route: 033
     Dates: start: 201309
  3. DIANEAL LOW CALCIUM [Suspect]
     Indication: RENAL FAILURE CHRONIC
     Route: 033
     Dates: start: 201309
  4. DIANEAL LOW CALCIUM [Suspect]
     Route: 033
     Dates: start: 201309

REACTIONS (3)
  - Musculoskeletal pain [Recovering/Resolving]
  - Abdominal pain [Recovered/Resolved]
  - Dyspnoea [Recovering/Resolving]
